FAERS Safety Report 19082778 (Version 1)
Quarter: 2021Q1

REPORT INFORMATION
  Report Type: Spontaneous
  Country: US (occurrence: US)
  Receive Date: 20210331
  Receipt Date: 20210331
  Transmission Date: 20210420
  Serious: Yes (Hospitalization)
  Sender: FDA-Public Use
  Company Number: None

PATIENT
  Age: 66 Year
  Sex: Male

DRUGS (17)
  1. PANTOPRAZOLE [Concomitant]
     Active Substance: PANTOPRAZOLE
  2. TYLENOL [Concomitant]
     Active Substance: ACETAMINOPHEN
  3. NEURONTIN [Concomitant]
     Active Substance: GABAPENTIN
  4. DIAZEPAM. [Concomitant]
     Active Substance: DIAZEPAM
  5. METHYLPRED [Concomitant]
     Active Substance: METHYLPREDNISOLONE
  6. TIZANIDINE. [Concomitant]
     Active Substance: TIZANIDINE
  7. REPATHA [Suspect]
     Active Substance: EVOLOCUMAB
     Indication: ARTERIOSCLEROSIS CORONARY ARTERY
     Dosage: 1 PEN Q2WK SQ
     Route: 058
     Dates: start: 20200512
  8. B COMPLEX VIT PLUS [Concomitant]
  9. ERY?TAB [Concomitant]
     Active Substance: ERYTHROMYCIN
  10. FLECAINIDE [Concomitant]
     Active Substance: FLECAINIDE
  11. GLUCOS/CHOND [Concomitant]
  12. INDOMETHACIN. [Concomitant]
     Active Substance: INDOMETHACIN
  13. PRAGUGREL [Concomitant]
  14. ALLEGRA [Concomitant]
     Active Substance: FEXOFENADINE HYDROCHLORIDE
  15. APAP/CODEINE [Concomitant]
     Active Substance: ACETAMINOPHEN\CODEINE PHOSPHATE
  16. ELIQUIS [Concomitant]
     Active Substance: APIXABAN
  17. METOPROL SUC ER [Concomitant]
     Active Substance: METOPROLOL SUCCINATE

REACTIONS (1)
  - Spinal operation [None]

NARRATIVE: CASE EVENT DATE: 20210331
